FAERS Safety Report 8138550-7 (Version None)
Quarter: 2012Q1

REPORT INFORMATION
  Report Type: 
  Country: None (occurrence: None)
  Receive Date: 20120215
  Receipt Date: 20120203
  Transmission Date: 20120608
  Serious: Yes (Hospitalization, Other)
  Sender: FDA-Public Use
  Company Number: JP-ROCHE-797184

PATIENT
  Sex: Male
  Weight: 52 kg

DRUGS (5)
  1. FLUOROURACIL [Suspect]
     Indication: COLORECTAL CANCER
     Route: 040
  2. FLUOROURACIL [Suspect]
     Route: 041
  3. LEVOLEUCOVORIN CALCIUM [Suspect]
     Indication: COLORECTAL CANCER
     Route: 041
  4. OXALIPLATIN [Suspect]
     Indication: COLORECTAL CANCER
     Route: 041
  5. AVASTIN [Suspect]
     Indication: COLORECTAL CANCER
     Route: 041
     Dates: start: 20110113, end: 20110727

REACTIONS (1)
  - INTERSTITIAL LUNG DISEASE [None]
